FAERS Safety Report 6958665-6 (Version None)
Quarter: 2010Q3

REPORT INFORMATION
  Report Type: 
  Country: None (occurrence: None)
  Receive Date: 20100831
  Receipt Date: 20100825
  Transmission Date: 20110219
  Serious: Yes (Hospitalization, Other)
  Sender: FDA-Public Use
  Company Number: US-GENZYME-THYM-1001798

PATIENT
  Sex: Female
  Weight: 65 kg

DRUGS (15)
  1. THYMOGLOBULIN [Suspect]
     Indication: PROPHYLAXIS AGAINST TRANSPLANT REJECTION
     Dosage: 125 MG, ONCE
     Route: 042
     Dates: start: 20100102, end: 20100102
  2. THYMOGLOBULIN [Suspect]
     Dosage: 75 MG, ONCE
     Route: 042
     Dates: start: 20100104, end: 20100104
  3. BASILIXIMAB [Concomitant]
     Indication: PROPHYLAXIS AGAINST TRANSPLANT REJECTION
     Dosage: UNK
     Route: 065
     Dates: start: 20100106
  4. BASILIXIMAB [Concomitant]
     Dosage: UNK
     Route: 065
     Dates: start: 20100110, end: 20100110
  5. METHYLPREDNISONE PREDNISONE [Concomitant]
     Indication: IMMUNOSUPPRESSION
     Dosage: 400 MG, ONCE
     Route: 065
     Dates: start: 20100102
  6. METHYLPREDNISONE PREDNISONE [Concomitant]
     Dosage: 200 MG, ONCE
     Route: 065
     Dates: start: 20100102
  7. METHYLPREDNISONE PREDNISONE [Concomitant]
     Dosage: 20 MG, QD
     Route: 048
     Dates: start: 20100102
  8. MYCOPHENOLATE MOFETIL [Concomitant]
     Indication: IMMUNOSUPPRESSION
     Dosage: 1000 MG, Q12HR
     Route: 048
     Dates: start: 20100102
  9. DARBEPOETIN ALFA [Concomitant]
     Indication: ANAEMIA
     Dosage: 100 MG, ONCE
     Route: 058
     Dates: start: 20100103, end: 20100103
  10. METOPROLOL TARTRATE [Concomitant]
     Indication: BLOOD PRESSURE MANAGEMENT
     Dosage: 5 MG, PRN
     Route: 042
     Dates: start: 20100103
  11. PANTOPRAZOLE [Concomitant]
     Indication: PROPHYLAXIS AGAINST GASTROINTESTINAL ULCER
     Dosage: 40 MG, QD
     Route: 048
     Dates: start: 20100103
  12. COTRIM [Concomitant]
     Indication: INFECTION PROPHYLAXIS
     Dosage: UNK
     Route: 048
     Dates: start: 20100103
  13. CLOTRIMAZOLE [Concomitant]
     Indication: INFECTION PROPHYLAXIS
     Dosage: 10 MG, TID
     Route: 048
     Dates: start: 20100103
  14. VALGANCICLOVIR [Concomitant]
     Indication: INFECTION PROPHYLAXIS
     Dosage: 450 MG, QOD
     Route: 048
     Dates: start: 20100103
  15. TACROLIMUS [Concomitant]
     Indication: IMMUNOSUPPRESSION
     Dosage: 1 MG, Q12HR
     Route: 048
     Dates: start: 20100105

REACTIONS (1)
  - IDIOPATHIC THROMBOCYTOPENIC PURPURA [None]
